FAERS Safety Report 12761121 (Version 1)
Quarter: 2016Q3

REPORT INFORMATION
  Report Type: Spontaneous
  Country: US (occurrence: US)
  Receive Date: 20160920
  Receipt Date: 20160920
  Transmission Date: 20161109
  Serious: No
  Sender: FDA-Public Use
  Company Number: US-STRIDES ARCOLAB LIMITED-2016SP012119

PATIENT

DRUGS (1)
  1. CALCITRIOL CAPSULES, 0.5 MCG [Suspect]
     Active Substance: CALCITRIOL
     Dosage: UNK

REACTIONS (3)
  - Drug dispensing error [None]
  - Product quality issue [None]
  - Product physical issue [Unknown]
